FAERS Safety Report 25182673 (Version 1)
Quarter: 2025Q2

REPORT INFORMATION
  Report Type: Spontaneous
  Country: PR (occurrence: PR)
  Receive Date: 20250410
  Receipt Date: 20250410
  Transmission Date: 20250717
  Serious: No
  Sender: ABBVIE
  Company Number: PR-ABBVIE-6211718

PATIENT
  Sex: Male

DRUGS (1)
  1. UPADACITINIB [Suspect]
     Active Substance: UPADACITINIB
     Indication: Colitis ulcerative
     Route: 048

REACTIONS (1)
  - Diarrhoea [Not Recovered/Not Resolved]
